FAERS Safety Report 7321765-5 (Version None)
Quarter: 2011Q1

REPORT INFORMATION
  Report Type: 
  Country: None (occurrence: None)
  Receive Date: 20110228
  Receipt Date: 20110221
  Transmission Date: 20110831
  Serious: Yes (Other)
  Sender: FDA-Public Use
  Company Number: GB-PFIZER INC-2009312560

PATIENT
  Age: 17 Year
  Sex: Male

DRUGS (17)
  1. CYCLOPHOSPHAMIDE [Suspect]
     Indication: BURKITT'S LYMPHOMA
  2. RITUXIMAB [Suspect]
     Indication: BURKITT'S LYMPHOMA
     Dosage: 375 MG/M2, UNK
  3. PREDNISOLONE [Concomitant]
     Indication: ILL-DEFINED DISORDER
  4. DOXORUBICIN HCL [Suspect]
     Indication: BURKITT'S LYMPHOMA
     Dosage: 200 MG, 1X/DAY
     Route: 042
  5. ARA-C [Suspect]
     Indication: BURKITT'S LYMPHOMA
     Dosage: 1000 MG/M2, 1X/DAY
  6. DEXRAZOXANE [Suspect]
     Indication: ILL-DEFINED DISORDER
  7. ONCOVIN [Suspect]
     Indication: BURKITT'S LYMPHOMA
     Dosage: 6 MG/M2, 1X/DAY
  8. ITRACONAZOLE [Suspect]
     Indication: PROPHYLAXIS
  9. VP-16 [Suspect]
     Indication: BURKITT'S LYMPHOMA
  10. CAELYX [Suspect]
     Indication: BURKITT'S LYMPHOMA
     Dosage: 200 MG, UNK
     Route: 042
  11. METHOTREXATE SODIUM [Suspect]
     Indication: BURKITT'S LYMPHOMA
     Route: 024
  12. PREDNISOLONE [Suspect]
     Indication: BURKITT'S LYMPHOMA
  13. TACROLIMUS [Suspect]
     Indication: IMMUNOSUPPRESSION
  14. THIOGUANINE [Suspect]
     Indication: BURKITT'S LYMPHOMA
  15. ACICLOVIR [Suspect]
     Indication: PROPHYLAXIS
  16. SULFAMETHOXAZOLE AND TRIMETHOPRIM [Suspect]
     Indication: PROPHYLAXIS
  17. MERCAPTOPURINE [Suspect]
     Indication: BURKITT'S LYMPHOMA

REACTIONS (2)
  - NEUTROPENIA [None]
  - RENAL IMPAIRMENT [None]
